FAERS Safety Report 6815600-9 (Version None)
Quarter: 2010Q3

REPORT INFORMATION
  Report Type: 
  Country: None (occurrence: None)
  Receive Date: 20100702
  Receipt Date: 20100623
  Transmission Date: 20110219
  Serious: Yes (Hospitalization, Other)
  Sender: FDA-Public Use
  Company Number: JP-ROCHE-712069

PATIENT
  Sex: Female

DRUGS (20)
  1. TOCILIZUMAB [Suspect]
     Indication: RHEUMATOID ARTHRITIS
     Route: 041
     Dates: start: 20080617, end: 20080617
  2. TOCILIZUMAB [Suspect]
     Route: 041
     Dates: start: 20080715, end: 20080715
  3. TOCILIZUMAB [Suspect]
     Route: 041
     Dates: start: 20080812, end: 20080812
  4. TOCILIZUMAB [Suspect]
     Route: 041
     Dates: start: 20080909, end: 20080909
  5. TOCILIZUMAB [Suspect]
     Route: 041
     Dates: start: 20081007, end: 20081007
  6. TOCILIZUMAB [Suspect]
     Route: 041
     Dates: start: 20081104, end: 20081104
  7. TOCILIZUMAB [Suspect]
     Route: 041
     Dates: start: 20081202
  8. RHEUMATREX [Concomitant]
     Route: 048
  9. ISCOTIN [Concomitant]
     Route: 048
     Dates: start: 20080415, end: 20081202
  10. PREDONINE [Concomitant]
     Route: 048
     Dates: start: 20080415, end: 20080602
  11. PREDONINE [Concomitant]
     Route: 048
     Dates: start: 20080603
  12. FOLIAMIN [Concomitant]
     Dosage: FREQUENCY REPORTED AS /1 DAY(S)
     Route: 048
  13. CYTOTEC [Concomitant]
     Route: 048
  14. VOLTAREN [Concomitant]
     Dosage: DRUG REPORTED: DICLOFENAC SODIUM. DOSE FORM: PERORAL AGENT
     Route: 048
  15. PARIET [Concomitant]
     Dosage: DRUG: SODIUM RABEPRAZOLE
     Route: 048
  16. PRIMPERAN TAB [Concomitant]
     Dosage: DOSE FORM: PERORAL AGENT
     Route: 048
     Dates: end: 20080812
  17. SEVEN E-P [Concomitant]
     Route: 048
     Dates: end: 20080812
  18. TALION [Concomitant]
     Dosage: DRUG: BEPOTASTINE BESILATE
     Route: 048
     Dates: start: 20080617
  19. FLURBIPROFEN [Concomitant]
     Dosage: DRUG: YAKUBAN (FLURBIPROFEN). DOSE FORM: TAPE.  NOTE: PROPER QUANTITY.
     Route: 062
     Dates: start: 20080617
  20. GASMOTIN [Concomitant]
     Dosage: DRUG: MOSAPRIDE CITRATE
     Route: 048
     Dates: end: 20080812

REACTIONS (3)
  - EPILEPSY [None]
  - JOINT ARTHROPLASTY [None]
  - PALPITATIONS [None]
